FAERS Safety Report 9210860 (Version 1)
Quarter: 2013Q2

REPORT INFORMATION
  Report Type: Spontaneous
  Country: IT (occurrence: IT)
  Receive Date: 20130404
  Receipt Date: 20130404
  Transmission Date: 20140414
  Serious: Yes (Death)
  Sender: FDA-Public Use
  Company Number: IT-ACTAVIS-2013-05410

PATIENT
  Age: 78 Year
  Sex: Male

DRUGS (8)
  1. GENTAMICIN SULFATE (UNKNOWN) [Suspect]
     Indication: BACTERIAL SEPSIS
     Dosage: UNKNOWN
     Route: 065
  2. MEROPENEM [Suspect]
     Indication: BACTERIAL SEPSIS
     Dosage: UNKNOWN
     Route: 065
  3. VANCOMYCIN HYDROCHLORIDE [Suspect]
     Indication: BACTERIAL SEPSIS
     Dosage: UNKNOWN
     Route: 065
  4. LEVOFLOXACIN [Suspect]
     Indication: BACTERIAL SEPSIS
     Dosage: UNKNOWN
     Route: 065
  5. COLCHICINE [Concomitant]
     Indication: ARTHRALGIA
     Dosage: 1 MG, DAILY
     Route: 065
  6. METHYLPREDNISOLONE [Concomitant]
     Indication: ARTHRALGIA
     Dosage: 4 MG, DAILY
     Route: 065
  7. PARACETAMOL [Concomitant]
     Indication: ARTHRALGIA
     Dosage: UNKNOWN
     Route: 065
  8. ALLOPURINOL [Concomitant]
     Indication: GOUT
     Dosage: 100 MG, DAILY
     Route: 065

REACTIONS (3)
  - Renal failure [Fatal]
  - Renal failure [None]
  - Drug resistance [None]
